FAERS Safety Report 8050818-1 (Version None)
Quarter: 2012Q1

REPORT INFORMATION
  Report Type: 
  Country: None (occurrence: None)
  Receive Date: 20120117
  Receipt Date: 20120110
  Transmission Date: 20120608
  Serious: Yes (Other)
  Sender: FDA-Public Use
  Company Number: ES-B.I. PHARMACEUTICALS,INC./RIDGEFIELD-2012-ES-00009ES

PATIENT
  Age: 3 Day
  Sex: Male

DRUGS (3)
  1. RETROVIR [Suspect]
     Indication: CONGENITAL HIV INFECTION
     Dosage: 24 MG
     Route: 048
     Dates: start: 20111130
  2. VIRAMUNE [Suspect]
     Indication: CONGENITAL HIV INFECTION
     Dosage: 6 MG
     Route: 048
     Dates: start: 20111130, end: 20111202
  3. EPIVIR [Suspect]
     Indication: CONGENITAL HIV INFECTION
     Dosage: 12 MG
     Route: 048
     Dates: start: 20111130

REACTIONS (3)
  - TREMOR [None]
  - HYPERTONIA [None]
  - HYPOCALCAEMIA [None]
